FAERS Safety Report 12188919 (Version 1)
Quarter: 2016Q1

REPORT INFORMATION
  Report Type: Spontaneous
  Country: US (occurrence: US)
  Receive Date: 20160317
  Receipt Date: 20160317
  Transmission Date: 20160526
  Serious: No
  Sender: FDA-Public Use
  Company Number: US-LEO PHARMA-240652

PATIENT
  Age: 76 Year
  Sex: Female

DRUGS (1)
  1. DAIVOBET [Suspect]
     Active Substance: BETAMETHASONE DIPROPIONATE\CALCIPOTRIENE
     Indication: DRY SKIN
     Dates: start: 20160305

REACTIONS (2)
  - Product use issue [Unknown]
  - Medication residue present [Not Recovered/Not Resolved]
